FAERS Safety Report 8191922-7 (Version None)
Quarter: 2012Q1

REPORT INFORMATION
  Report Type: 
  Country: None (occurrence: None)
  Receive Date: 20120307
  Receipt Date: 20120229
  Transmission Date: 20120608
  Serious: Yes (Other)
  Sender: FDA-Public Use
  Company Number: PHHY2012NL007551

PATIENT
  Sex: Female

DRUGS (11)
  1. METOPROLOL SUCCINATE [Concomitant]
     Dosage: 50 MG, DAILY
  2. NEXIUM [Concomitant]
     Dosage: 40 MG, QD
  3. LEVOTHYROXINE SODIUM [Concomitant]
     Dosage: 0.1 MG, QD
  4. ZOMETA [Suspect]
     Indication: TRANSITIONAL CELL CARCINOMA
     Dosage: 4 MG/100 ML, ONCE PER 42 DAYS
     Dates: start: 20111111
  5. OXYCODONE HCL [Concomitant]
     Dosage: 10 MG, (1 TAB SIX TIMES DAILY)
  6. MOVICOLON [Concomitant]
     Dosage: 13 G, QD
  7. LACTULOSE [Concomitant]
     Dosage: 15 CM3, PRN
  8. HALDOL [Concomitant]
     Dosage: 1 MG, BID
  9. FENTANYL-100 [Concomitant]
     Dosage: 75 UG/HR, TID
  10. ACETAMINOPHEN [Concomitant]
     Dosage: 1000 MG, QID
  11. ZOMETA [Suspect]
     Dosage: 4 MG/100 ML, ONCE PER 42 DAYS
     Dates: start: 20111223, end: 20111223

REACTIONS (3)
  - NEOPLASM MALIGNANT [None]
  - NEOPLASM PROGRESSION [None]
  - TERMINAL STATE [None]
